FAERS Safety Report 19813043 (Version 1)
Quarter: 2021Q3

REPORT INFORMATION
  Report Type: Spontaneous
  Country: US (occurrence: US)
  Receive Date: 20210909
  Receipt Date: 20210909
  Transmission Date: 20211014
  Serious: No
  Sender: FDA-Public Use
  Company Number: US-PERRIGO-21US002219

PATIENT
  Sex: Female

DRUGS (1)
  1. MINOXIDIL. [Suspect]
     Active Substance: MINOXIDIL
     Indication: ALOPECIA
     Dosage: UNKNOWN, UNKNOWN
     Route: 061
     Dates: start: 202101, end: 202102

REACTIONS (4)
  - Expired product administered [Recovered/Resolved]
  - Application site pain [Unknown]
  - Drug ineffective [Unknown]
  - Application site pruritus [Unknown]

NARRATIVE: CASE EVENT DATE: 202101
